FAERS Safety Report 6233045-X (Version None)
Quarter: 2009Q2

REPORT INFORMATION
  Report Type: 
  Country: None (occurrence: None)
  Receive Date: 20090617
  Receipt Date: 20090602
  Transmission Date: 20091009
  Serious: Yes (Death, Hospitalization)
  Sender: FDA-Public Use
  Company Number: US-ALEXION-A200900445

PATIENT
  Sex: Female

DRUGS (3)
  1. SOLIRIS [Suspect]
     Indication: PAROXYSMAL NOCTURNAL HAEMOGLOBINURIA
     Dosage: 600 MG, QW
     Route: 042
     Dates: start: 20090325
  2. ATG                                /00575401/ [Concomitant]
  3. CYCLOSPORINE [Concomitant]

REACTIONS (4)
  - ANAEMIA [None]
  - HEAD INJURY [None]
  - OVARIAN CANCER [None]
  - VIRAL INFECTION [None]
